FAERS Safety Report 4269150-7 (Version None)
Quarter: 2004Q1

REPORT INFORMATION
  Report Type: 
  Country: None (occurrence: None)
  Receive Date: 20040109
  Receipt Date: 20040105
  Transmission Date: 20041129
  Serious: Yes (Disabling)
  Sender: FDA-Public Use
  Company Number: JP-JNJFOC-20031204814

PATIENT
  Age: 71 Year
  Sex: Male

DRUGS (7)
  1. OFLOXACIN [Suspect]
     Indication: BRONCHITIS
     Dosage: ORAL
     Route: 048
     Dates: start: 20030501, end: 20030601
  2. VALACYCLOVIR HCL [Suspect]
     Indication: DRUG USE FOR UNKNOWN INDICATION
     Dosage: 5 MG, ORAL
     Route: 048
  3. SERETIDE (SPRAY) [Concomitant]
  4. BRONCHODUAL (DUOVENT) [Concomitant]
  5. ANDROTARDYL (TESTOSTERONE ENANTATE) [Concomitant]
  6. ISOPTIN [Suspect]
  7. HYZAAR [Suspect]
     Dosage: ORAL
     Route: 048

REACTIONS (7)
  - CONDITION AGGRAVATED [None]
  - INJURY [None]
  - MYALGIA [None]
  - PARAESTHESIA [None]
  - POLYNEUROPATHY [None]
  - TENDON RUPTURE [None]
  - TENDONITIS [None]
